FAERS Safety Report 8545102-3 (Version None)
Quarter: 2012Q3

REPORT INFORMATION
  Report Type: 
  Country: None (occurrence: None)
  Receive Date: 20120727
  Receipt Date: 20120720
  Transmission Date: 20120928
  Serious: Yes (Death)
  Sender: FDA-Public Use
  Company Number: TR-ROCHE-1092822

PATIENT
  Sex: Male
  Weight: 59 kg

DRUGS (1)
  1. XELODA [Suspect]
     Indication: PANCREATIC CARCINOMA
     Dosage: 500 MG 3+3
     Route: 048
     Dates: start: 20120427

REACTIONS (1)
  - DEATH [None]
